FAERS Safety Report 25050751 (Version 1)
Quarter: 2025Q1

REPORT INFORMATION
  Report Type: Spontaneous
  Country: US (occurrence: US)
  Receive Date: 20250307
  Receipt Date: 20250307
  Transmission Date: 20250408
  Serious: Yes (Hospitalization, Other)
  Sender: GLAXOSMITHKLINE
  Company Number: US-GSK-US2025025327

PATIENT

DRUGS (1)
  1. TRELEGY ELLIPTA [Suspect]
     Active Substance: FLUTICASONE FUROATE\UMECLIDINIUM BROMIDE\VILANTEROL TRIFENATATE
     Indication: Chronic obstructive pulmonary disease
     Dosage: UNK, QD, TRELEGY 100

REACTIONS (4)
  - Pneumonia [Recovering/Resolving]
  - Pneumonia fungal [Recovering/Resolving]
  - Endobronchial valve implantation [Recovering/Resolving]
  - Influenza [Recovering/Resolving]
